FAERS Safety Report 7917019-6 (Version None)
Quarter: 2011Q4

REPORT INFORMATION
  Report Type: 
  Country: None (occurrence: None)
  Receive Date: 20111116
  Receipt Date: 20111103
  Transmission Date: 20120403
  Serious: Yes (Hospitalization)
  Sender: FDA-Public Use
  Company Number: DE-NOVOPROD-329098

PATIENT

DRUGS (3)
  1. NORDITROPIN [Suspect]
     Indication: FOETAL GROWTH RESTRICTION
     Dosage: 0.8 MG, QD
     Route: 058
     Dates: start: 20080611
  2. JODID [Concomitant]
     Indication: BLOOD THYROID STIMULATING HORMONE INCREASED
     Dosage: 100 UG, QD
     Dates: start: 20110606
  3. INFLANEFRAN [Concomitant]

REACTIONS (1)
  - RETINAL DETACHMENT [None]
